FAERS Safety Report 12769237 (Version 1)
Quarter: 2016Q3

REPORT INFORMATION
  Report Type: Spontaneous
  Country: FR (occurrence: FR)
  Receive Date: 20160921
  Receipt Date: 20160921
  Transmission Date: 20161109
  Serious: Yes (Other)
  Sender: FDA-Public Use
  Company Number: FR-ACORDA-ACO_128379_2016

PATIENT
  Sex: Female

DRUGS (2)
  1. QUTENZA [Suspect]
     Active Substance: CAPSAICIN
     Indication: NEURALGIA
     Dosage: 3/4 OF PATCH, Q 3 MONTHS
     Route: 061
     Dates: start: 201509, end: 201512
  2. QUTENZA [Suspect]
     Active Substance: CAPSAICIN
     Dosage: 3/4 OF PATCH, Q 2 MONTHS
     Route: 061
     Dates: start: 201512, end: 20160802

REACTIONS (13)
  - Seizure [Recovered/Resolved]
  - Tremor [Recovered/Resolved]
  - Application site pain [Recovered/Resolved]
  - Haematoma [Unknown]
  - Incorrect drug administration duration [None]
  - Intentional product misuse [None]
  - Drug ineffective [None]
  - Nausea [Recovered/Resolved]
  - Fall [Unknown]
  - Pain [Not Recovered/Not Resolved]
  - Hyperhidrosis [Unknown]
  - Application site warmth [Recovered/Resolved]
  - Application site erythema [Recovered/Resolved]

NARRATIVE: CASE EVENT DATE: 201509
